FAERS Safety Report 10660465 (Version 2)
Quarter: 2015Q3

REPORT INFORMATION
  Report Type: Spontaneous
  Country: US (occurrence: US)
  Receive Date: 20141217
  Receipt Date: 20150828
  Transmission Date: 20151125
  Serious: No
  Sender: FDA-Public Use
  Company Number: US-GLAXOSMITHKLINE-A1086134A

PATIENT
  Age: 55 Year
  Sex: Male
  Weight: 90.9 kg

DRUGS (5)
  1. VOTRIENT [Suspect]
     Active Substance: PAZOPANIB HYDROCHLORIDE
     Indication: RENAL CANCER
     Dosage: 800 MG, QD
     Route: 048
  2. ATORVASTATIN TABLET [Concomitant]
     Active Substance: ATORVASTATIN
     Route: 065
  3. HYDROCORT TABLET [Concomitant]
     Route: 065
  4. LEVOTHYROXIN TABLET [Concomitant]
     Route: 065
  5. TESTOSTERONE. [Concomitant]
     Active Substance: TESTOSTERONE
     Dosage: CAP FORMULA
     Route: 065

REACTIONS (4)
  - Vomiting [Unknown]
  - Diarrhoea [Unknown]
  - Nausea [Unknown]
  - Surgery [Unknown]

NARRATIVE: CASE EVENT DATE: 20140820
